FAERS Safety Report 19687194 (Version 1)
Quarter: 2021Q3

REPORT INFORMATION
  Report Type: Spontaneous
  Country: US (occurrence: US)
  Receive Date: 20210811
  Receipt Date: 20210811
  Transmission Date: 20211014
  Serious: Yes (Other)
  Sender: FDA-Public Use
  Company Number: US-PFIZER INC-2021092819

PATIENT
  Age: 67 Year
  Sex: Male

DRUGS (4)
  1. SUTENT [Suspect]
     Active Substance: SUNITINIB MALATE
     Dosage: 37.5 MG, CYCLIC (4 WEEKS ON 2 WEEKS OFF)
     Dates: start: 202104
  2. SUTENT [Suspect]
     Active Substance: SUNITINIB MALATE
     Dosage: 37.5 MG, CYCLIC (4 WEEKS ON 2 WEEKS OFF)
     Dates: start: 20210415, end: 20210424
  3. SUTENT [Suspect]
     Active Substance: SUNITINIB MALATE
     Indication: CONNECTIVE TISSUE NEOPLASM
     Dosage: 50 MG, CYCLIC
  4. SUTENT [Suspect]
     Active Substance: SUNITINIB MALATE
     Dosage: 37.5 MG, CYCLIC (DAYS 1?28 OF A 42 DAY CYCLE)
     Route: 048
     Dates: start: 20210711

REACTIONS (5)
  - Blood creatinine increased [Recovering/Resolving]
  - Dyspnoea exertional [Unknown]
  - Fatigue [Unknown]
  - Off label use [Unknown]
  - Neoplasm progression [Unknown]

NARRATIVE: CASE EVENT DATE: 202104
